FAERS Safety Report 9244504 (Version 3)
Quarter: 2013Q2

REPORT INFORMATION
  Report Type: Spontaneous
  Country: JP (occurrence: JP)
  Receive Date: 20130422
  Receipt Date: 20130507
  Transmission Date: 20140414
  Serious: Yes (Hospitalization)
  Sender: FDA-Public Use
  Company Number: JP-PFIZER INC-2013123729

PATIENT
  Age: 80 Year
  Sex: Female
  Weight: 45.2 kg

DRUGS (7)
  1. CELECOX [Suspect]
     Indication: FEMORAL NECK FRACTURE
     Dosage: 200 MG, 2X/DAY
     Route: 048
     Dates: start: 20121108, end: 20121122
  2. CELECOX [Suspect]
     Indication: PROCEDURAL PAIN
  3. URSO [Concomitant]
     Indication: HEPATIC CIRRHOSIS
     Dosage: 600 MG, DAILY
     Route: 048
     Dates: start: 20080328
  4. LUPRAC [Concomitant]
     Indication: HEPATIC CIRRHOSIS
     Dosage: 4 MG, DAILY
     Dates: start: 20090306
  5. LUPRAC [Concomitant]
     Indication: HEPATORENAL SYNDROME
  6. ALDACTONE-A [Concomitant]
     Indication: HEPATIC CIRRHOSIS
     Dosage: 25 MG, DAILY
     Route: 048
     Dates: start: 20090306
  7. ALDACTONE-A [Concomitant]
     Indication: HEPATORENAL SYNDROME

REACTIONS (3)
  - Pleural effusion [Recovered/Resolved]
  - Ascites [Recovered/Resolved]
  - Blood albumin decreased [Recovered/Resolved]
